FAERS Safety Report 19956670 (Version 2)
Quarter: 2021Q4

REPORT INFORMATION
  Report Type: Spontaneous
  Country: US (occurrence: US)
  Receive Date: 20211014
  Receipt Date: 20211022
  Transmission Date: 20220303
  Serious: No
  Sender: FDA-Public Use
  Company Number: US-AMGEN-USASP2021157990

PATIENT
  Age: 48 Year
  Sex: Male

DRUGS (3)
  1. AIMOVIG [Suspect]
     Active Substance: ERENUMAB-AOOE
     Indication: Migraine
     Dosage: 140 MILLIGRAM, QMO(28 DAYS)
     Route: 065
  2. AIMOVIG [Suspect]
     Active Substance: ERENUMAB-AOOE
     Dosage: 70 MILLIGRAM, Q2WK
     Route: 065
  3. OXYTOCIN [Concomitant]
     Active Substance: OXYTOCIN
     Indication: Product used for unknown indication
     Dosage: UNK

REACTIONS (6)
  - Therapeutic product effect incomplete [Unknown]
  - Accidental exposure to product [Unknown]
  - Wrong technique in product usage process [Unknown]
  - Device difficult to use [Unknown]
  - Off label use [Unknown]
  - Adverse event [Not Recovered/Not Resolved]

NARRATIVE: CASE EVENT DATE: 20211008
